FAERS Safety Report 19496716 (Version 1)
Quarter: 2021Q3

REPORT INFORMATION
  Report Type: Spontaneous
  Country: US (occurrence: US)
  Receive Date: 20210703
  Receipt Date: 20210703
  Transmission Date: 20211014
  Serious: Yes (Other)
  Sender: FDA-Public Use
  Company Number: None

PATIENT
  Age: 67 Year
  Sex: Male
  Weight: 80.1 kg

DRUGS (9)
  1. IBUPROFEN LIQUID GELS 200MG [Suspect]
     Active Substance: IBUPROFEN
     Indication: HEADACHE
     Dosage: ?          QUANTITY:1 CAPSULE(S);?
     Route: 048
     Dates: start: 20200215, end: 20210518
  2. RAMAPRIL [Concomitant]
  3. EZETIMIDE [Concomitant]
     Active Substance: EZETIMIBE
  4. IBUPROFEN LIQUID GELS 200MG [Suspect]
     Active Substance: IBUPROFEN
     Indication: MYALGIA
     Dosage: ?          QUANTITY:1 CAPSULE(S);?
     Route: 048
     Dates: start: 20200215, end: 20210518
  5. ALBUTEROL INHALER (PRN) [Concomitant]
  6. CLARYTHROMICIN (FOR SINUS INFECTION) [Concomitant]
  7. SAW PALMETTO [Concomitant]
     Active Substance: HERBALS\SAW PALMETTO
  8. TYLENOL [Concomitant]
     Active Substance: ACETAMINOPHEN
  9. FAMOTIDINE. [Concomitant]
     Active Substance: FAMOTIDINE

REACTIONS (4)
  - Dyspnoea [None]
  - Aspirin-exacerbated respiratory disease [None]
  - Wheezing [None]
  - Drug hypersensitivity [None]

NARRATIVE: CASE EVENT DATE: 20210518
